FAERS Safety Report 12694085 (Version 1)
Quarter: 2016Q3

REPORT INFORMATION
  Report Type: Report from Study
  Country: US (occurrence: US)
  Receive Date: 20160829
  Receipt Date: 20160829
  Transmission Date: 20161109
  Serious: Yes (Hospitalization)
  Sender: FDA-Public Use
  Company Number: US-PURDUE-USA-2011-0071563

PATIENT
  Age: 42 Year
  Sex: Male

DRUGS (1)
  1. OXYCONTIN [Suspect]
     Active Substance: OXYCODONE HYDROCHLORIDE
     Indication: PRODUCT USED FOR UNKNOWN INDICATION
     Dosage: 40 MG, BID

REACTIONS (3)
  - Pyrexia [Unknown]
  - Endocarditis [Unknown]
  - Hospitalisation [Unknown]

NARRATIVE: CASE EVENT DATE: 20110528
